FAERS Safety Report 17392667 (Version 1)
Quarter: 2020Q1

REPORT INFORMATION
  Report Type: Spontaneous
  Country: US (occurrence: US)
  Receive Date: 20200207
  Receipt Date: 20200207
  Transmission Date: 20200409
  Serious: No
  Sender: FDA-Public Use
  Company Number: US-GLENMARK PHARMACEUTICALS-2019GMK044604

PATIENT

DRUGS (1)
  1. RANITIDINE TABLETS USP, 150 MG [Suspect]
     Active Substance: RANITIDINE HYDROCHLORIDE
     Indication: PRODUCT USED FOR UNKNOWN INDICATION
     Dosage: UNK
     Route: 065
     Dates: start: 201910

REACTIONS (1)
  - Nausea [Recovering/Resolving]

NARRATIVE: CASE EVENT DATE: 201910
